FAERS Safety Report 11177506 (Version 1)
Quarter: 2015Q2

REPORT INFORMATION
  Report Type: Spontaneous
  Country: US (occurrence: None)
  Receive Date: 20150515
  Receipt Date: 20150515
  Transmission Date: 20150821
  Serious: Yes (Other)
  Sender: FDA-Public Use
  Company Number: 2014005466

PATIENT
  Age: 60 Year
  Sex: Female
  Weight: 76.2 kg

DRUGS (3)
  1. CIMZIA [Suspect]
     Active Substance: CERTOLIZUMAB PEGOL
     Indication: COLITIS ULCERATIVE
     Route: 058
     Dates: start: 20140617, end: 201407
  2. CIMZIA [Suspect]
     Active Substance: CERTOLIZUMAB PEGOL
     Indication: OFF LABEL USE
     Route: 058
     Dates: start: 20140617, end: 201407
  3. LIALDA (MESALAZINE) [Concomitant]

REACTIONS (10)
  - Insomnia [None]
  - Dyspnoea [None]
  - Arthralgia [None]
  - Asthenia [None]
  - Off label use [None]
  - Drug ineffective [None]
  - Urinary tract infection [None]
  - Eyelid infection [None]
  - Fatigue [None]
  - Pain [None]

NARRATIVE: CASE EVENT DATE: 20140617
